FAERS Safety Report 10432570 (Version 1)
Quarter: 2014Q3

REPORT INFORMATION
  Report Type: Other
  Country: GB (occurrence: GB)
  Receive Date: 20140905
  Receipt Date: 20140905
  Transmission Date: 20150326
  Serious: Yes (Other)
  Sender: FDA-Public Use
  Company Number: GB-TARO PHARMACEUTICALS U.S.A., INC-2014SUN02020

PATIENT
  Age: 76 Year
  Sex: Female

DRUGS (2)
  1. WARFARIN [Suspect]
     Active Substance: WARFARIN
     Indication: PRODUCT USED FOR UNKNOWN INDICATION
     Dosage: 5 MG, UNK
     Route: 065
     Dates: start: 20140214
  2. DALTEPARIN [Suspect]
     Active Substance: DALTEPARIN
     Indication: PRODUCT USED FOR UNKNOWN INDICATION
     Dosage: 15000 IU, UNK
     Route: 065
     Dates: start: 20140214

REACTIONS (6)
  - Mouth haemorrhage [Unknown]
  - Contusion [Unknown]
  - Prothrombin time prolonged [None]
  - Activated partial thromboplastin time prolonged [None]
  - International normalised ratio increased [None]
  - Contraindication to medical treatment [Unknown]

NARRATIVE: CASE EVENT DATE: 20140214
